FAERS Safety Report 5194821-8 (Version None)
Quarter: 2006Q4

REPORT INFORMATION
  Report Type: 
  Country: None (occurrence: None)
  Receive Date: 20061227
  Receipt Date: 20061213
  Transmission Date: 20070319
  Serious: Yes (Other)
  Sender: FDA-Public Use
  Company Number: 2006AP001157

PATIENT
  Age: 60 Year
  Sex: Male

DRUGS (4)
  1. CYCLOSPORINE [Suspect]
     Indication: HEART TRANSPLANT
     Dosage: 3 MG/KG; QD ; 1.5 MG/KG; QD ; 0.5 MG/KG; QD
  2. CYCLOSPORINE [Suspect]
     Indication: HEART TRANSPLANT
     Dosage: 3 MG/KG; QD ; 1.5 MG/KG; QD ; 0.5 MG/KG; QD
  3. AZATHIOPRINE [Concomitant]
  4. PREDNISONE TAB [Concomitant]

REACTIONS (3)
  - DISEASE PROGRESSION [None]
  - NEPHROPATHY TOXIC [None]
  - RENAL FAILURE [None]
